FAERS Safety Report 13985430 (Version 3)
Quarter: 2019Q3

REPORT INFORMATION
  Report Type: Spontaneous
  Country: BR (occurrence: BR)
  Receive Date: 20170919
  Receipt Date: 20190802
  Transmission Date: 20191004
  Serious: Yes (Other)
  Sender: FDA-Public Use
  Company Number: BR-009507513-1709BRA007913

PATIENT
  Age: 26 Year
  Sex: Female
  Weight: 64 kg

DRUGS (2)
  1. NUVARING [Suspect]
     Active Substance: ETHINYL ESTRADIOL\ETONOGESTREL
     Dosage: 1 VAGINAL RING, UNK
     Route: 067
     Dates: start: 20170627, end: 20170717
  2. NUVARING [Suspect]
     Active Substance: ETHINYL ESTRADIOL\ETONOGESTREL
     Indication: CONTRACEPTION
     Dosage: 1 VAGINAL RING, 3 WEEKS WITH THE VAGINAL RING AND 1 WEEK FOR FREE CONTRACEPTIVE INTERVAL
     Route: 067
     Dates: start: 20170530, end: 20170620

REACTIONS (4)
  - Incorrect product administration duration [Unknown]
  - Unintended pregnancy [Recovered/Resolved]
  - Procedural pain [Recovered/Resolved]
  - Pregnancy with contraceptive device [Recovered/Resolved]

NARRATIVE: CASE EVENT DATE: 20170708
